FAERS Safety Report 5423698-8 (Version None)
Quarter: 2007Q3

REPORT INFORMATION
  Report Type: 
  Country: None (occurrence: None)
  Receive Date: 20070823
  Receipt Date: 20070821
  Transmission Date: 20080115
  Serious: Yes (Other)
  Sender: FDA-Public Use
  Company Number: D0054338A

PATIENT
  Sex: Male

DRUGS (2)
  1. ELONTRIL [Suspect]
     Indication: DEPRESSION
     Route: 048
     Dates: start: 20070501
  2. TREVILOR [Concomitant]
     Indication: DEPRESSION
     Route: 048
     Dates: end: 20070501

REACTIONS (3)
  - OBSESSIVE-COMPULSIVE DISORDER [None]
  - PERSECUTORY DELUSION [None]
  - SUICIDAL IDEATION [None]
